FAERS Safety Report 15739419 (Version 1)
Quarter: 2018Q4

REPORT INFORMATION
  Report Type: Other
  Country: JP (occurrence: JP)
  Receive Date: 20181219
  Receipt Date: 20181219
  Transmission Date: 20190205
  Serious: Yes (Hospitalization, Other)
  Sender: FDA-Public Use
  Company Number: JP-ACTELION-A-CH2018-183708

PATIENT
  Age: 62 Year
  Sex: Male

DRUGS (6)
  1. OPSUMIT [Suspect]
     Active Substance: MACITENTAN
     Indication: PULMONARY HYPERTENSION
     Route: 048
  2. EPOPROSTENOL SODIUM. [Suspect]
     Active Substance: EPOPROSTENOL SODIUM
     Indication: PULMONARY HYPERTENSION
     Route: 042
  3. DOBUTAMINE [Concomitant]
     Active Substance: DOBUTAMINE\DOBUTAMINE HYDROCHLORIDE
  4. TADALAFIL. [Concomitant]
     Active Substance: TADALAFIL
  5. MILRINONE [Concomitant]
     Active Substance: MILRINONE
  6. SPIRONOLACTONE. [Concomitant]
     Active Substance: SPIRONOLACTONE

REACTIONS (8)
  - Colostomy [Recovered/Resolved]
  - Pulmonary arterial pressure increased [Recovering/Resolving]
  - Adenocarcinoma [Unknown]
  - Gastrointestinal oedema [Recovered/Resolved]
  - Portal hypertension [Unknown]
  - Post procedural swelling [Recovered/Resolved]
  - Post procedural oedema [Recovered/Resolved]
  - Venous injury [Unknown]
